FAERS Safety Report 19010724 (Version 2)
Quarter: 2021Q1

REPORT INFORMATION
  Report Type: Other
  Country: US (occurrence: US)
  Receive Date: 20210316
  Receipt Date: 20210331
  Transmission Date: 20210420
  Serious: Yes (Other)
  Sender: FDA-Public Use
  Company Number: US-ROCHE-2074088

PATIENT
  Age: 66 Year
  Sex: Female
  Weight: 74.82 kg

DRUGS (33)
  1. ACTEMRA [Suspect]
     Active Substance: TOCILIZUMAB
     Indication: RHEUMATOID ARTHRITIS
  2. VERAPAMIL [Concomitant]
     Active Substance: VERAPAMIL HYDROCHLORIDE
     Dosage: 2 TABLETS AT BED TIME
  3. SYMBICORT [Concomitant]
     Active Substance: BUDESONIDE\FORMOTEROL FUMARATE DIHYDRATE
     Dosage: 80 MCG?4.5 MCG AEROSOL 2 PUFFS
  4. MELATONIN [Concomitant]
     Active Substance: MELATONIN
     Dosage: AT BED TIME
  5. ACTEMRA [Suspect]
     Active Substance: TOCILIZUMAB
  6. FLUOXETINE [Concomitant]
     Active Substance: FLUOXETINE HYDROCHLORIDE
  7. CALTRATE 600+D [Concomitant]
     Indication: OSTEOPOROSIS POSTMENOPAUSAL
     Dosage: 600 MG?400 UNITS
  8. GLUCOSAMINE [Concomitant]
     Active Substance: GLUCOSAMINE
     Route: 048
  9. OMEPRAZOLE. [Concomitant]
     Active Substance: OMEPRAZOLE
     Route: 048
  10. ASPIRIN. [Concomitant]
     Active Substance: ASPIRIN
  11. LUTEINUM [Concomitant]
     Active Substance: SUS SCROFA CORPUS LUTEUM
  12. ACTEMRA [Suspect]
     Active Substance: TOCILIZUMAB
  13. TERBINAFINE. [Concomitant]
     Active Substance: TERBINAFINE
  14. ACTEMRA [Suspect]
     Active Substance: TOCILIZUMAB
     Indication: RHEUMATOID ARTHRITIS
     Dosage: ONGOING: YES
     Route: 058
     Dates: start: 20150226
  15. SYMBICORT [Concomitant]
     Active Substance: BUDESONIDE\FORMOTEROL FUMARATE DIHYDRATE
     Dosage: 80MCG?4.5MCG/INH; 2 PUFFS
  16. LORATADINE. [Concomitant]
     Active Substance: LORATADINE
  17. GABAPENTIN. [Concomitant]
     Active Substance: GABAPENTIN
     Indication: FIBROMYALGIA
     Dosage: 1?2 TABLETS EVERYDAY AT BED TIME
  18. NORCO [Concomitant]
     Active Substance: ACETAMINOPHEN\HYDROCODONE BITARTRATE
     Indication: SPINAL OSTEOARTHRITIS
     Dosage: 325MG?5MG ; 2 TABS AT BEDTIME
  19. FISH OIL [Concomitant]
     Active Substance: FISH OIL
  20. HYDROCHLOROTHIAZIDE;TRIAMTERENE [Concomitant]
     Active Substance: HYDROCHLOROTHIAZIDE\TRIAMTERENE
     Dosage: 25 MG?75 MG
     Route: 048
  21. ACTEMRA [Suspect]
     Active Substance: TOCILIZUMAB
     Indication: RHEUMATOID ARTHRITIS
     Route: 058
     Dates: end: 201802
  22. MECLIZINE [Concomitant]
     Active Substance: MECLIZINE HYDROCHLORIDE
  23. PREDNISOLON [Concomitant]
     Active Substance: PREDNISOLONE
     Dosage: 3 TAB FOR WEEK 1, 2 TAB FOR WEEK 2 AND 1 TAB FOR WEEK 3
     Route: 048
  24. KENALOG [Concomitant]
     Active Substance: TRIAMCINOLONE ACETONIDE
     Route: 030
     Dates: start: 20160425
  25. PRAVASTATIN. [Concomitant]
     Active Substance: PRAVASTATIN
     Route: 048
  26. ALBUTEROL. [Concomitant]
     Active Substance: ALBUTEROL
     Dosage: 1 PUFF
  27. LEFLUNOMIDE. [Concomitant]
     Active Substance: LEFLUNOMIDE
     Route: 048
  28. VITAMIN D3 [Concomitant]
     Active Substance: CHOLECALCIFEROL
  29. ATORVASTATIN [Concomitant]
     Active Substance: ATORVASTATIN
     Dosage: AT BED TIME
  30. ACTEMRA [Suspect]
     Active Substance: TOCILIZUMAB
     Indication: RHEUMATOID ARTHRITIS
     Route: 058
  31. ALENDRONATE [Concomitant]
     Active Substance: ALENDRONATE SODIUM
     Indication: OSTEOPOROSIS POSTMENOPAUSAL
  32. ORENCIA [Concomitant]
     Active Substance: ABATACEPT
     Indication: RHEUMATOID ARTHRITIS
     Dosage: 125 MG/ML
     Route: 058
  33. SULFASALAZINE EN [Concomitant]
     Active Substance: SULFASALAZINE
     Indication: RHEUMATOID ARTHRITIS

REACTIONS (12)
  - Rheumatoid arthritis [Unknown]
  - Fatigue [Unknown]
  - Migraine [Unknown]
  - Chills [Unknown]
  - Blood creatinine increased [Unknown]
  - Oropharyngeal pain [Unknown]
  - Meniere^s disease [Unknown]
  - Hyperhidrosis [Unknown]
  - Infected dermal cyst [Recovered/Resolved]
  - Glaucoma [Recovered/Resolved]
  - Vomiting [Unknown]
  - Blood cholesterol increased [Unknown]

NARRATIVE: CASE EVENT DATE: 201607
